FAERS Safety Report 19810994 (Version 1)
Quarter: 2021Q3

REPORT INFORMATION
  Report Type: Spontaneous
  Country: US (occurrence: US)
  Receive Date: 20210910
  Receipt Date: 20210910
  Transmission Date: 20211014
  Serious: Yes (Other)
  Sender: FDA-Public Use
  Company Number: US-BLUEPRINT MEDICINES CORPORATION-SP-US-2021-001442

PATIENT
  Age: 69 Year
  Sex: Male

DRUGS (1)
  1. AYVAKIT [Suspect]
     Active Substance: AVAPRITINIB
     Indication: SYSTEMIC MASTOCYTOSIS
     Route: 048
     Dates: start: 20190701

REACTIONS (13)
  - Mobility decreased [Unknown]
  - Pigmentation disorder [Unknown]
  - Platelet count increased [Unknown]
  - Cognitive disorder [Unknown]
  - Pleural effusion [Unknown]
  - Drug ineffective [Unknown]
  - Splenomegaly [Unknown]
  - Mental impairment [Unknown]
  - Hepatomegaly [Unknown]
  - Off label use [Unknown]
  - Asthenia [Unknown]
  - Ascites [Unknown]
  - Tryptase increased [Unknown]
